FAERS Safety Report 11992373 (Version 1)
Quarter: 2016Q1

REPORT INFORMATION
  Report Type: Spontaneous
  Country: CN (occurrence: CN)
  Receive Date: 20160203
  Receipt Date: 20160203
  Transmission Date: 20160526
  Serious: Yes (Other)
  Sender: FDA-Public Use
  Company Number: CN-009507513-1601CHN010996

PATIENT
  Age: 78 Year
  Sex: Female
  Weight: 42 kg

DRUGS (1)
  1. TIENAM [Suspect]
     Active Substance: CILASTATIN SODIUM\IMIPENEM
     Indication: LUNG INFECTION
     Dosage: 0.5 G, Q6H
     Route: 041
     Dates: start: 20150815, end: 20150817

REACTIONS (1)
  - Anaphylactic shock [Recovering/Resolving]

NARRATIVE: CASE EVENT DATE: 20150817
